FAERS Safety Report 15739816 (Version 1)
Quarter: 2018Q4

REPORT INFORMATION
  Report Type: Spontaneous
  Country: IR (occurrence: IR)
  Receive Date: 20181219
  Receipt Date: 20181219
  Transmission Date: 20190205
  Serious: Yes (Other)
  Sender: FDA-Public Use
  Company Number: IR-PFIZER INC-2018518210

PATIENT

DRUGS (1)
  1. METHYLPREDNISOLONE ACETATE. [Suspect]
     Active Substance: METHYLPREDNISOLONE ACETATE
     Indication: DIABETIC RETINAL OEDEMA
     Dosage: UNK (POSTERIOR SUBTENON METHYLPREDNISOLONE ACETATE)

REACTIONS (2)
  - Injection site necrosis [Unknown]
  - Conjunctival ulcer [Unknown]
